FAERS Safety Report 8610893-X (Version None)
Quarter: 2012Q3

REPORT INFORMATION
  Report Type: 
  Country: None (occurrence: None)
  Receive Date: 20120808
  Receipt Date: 20120727
  Transmission Date: 20120928
  Serious: No
  Sender: FDA-Public Use
  Company Number: 120243

PATIENT
  Sex: Female

DRUGS (1)
  1. GOLYTELY [Suspect]

REACTIONS (4)
  - HYPERHIDROSIS [None]
  - DIZZINESS [None]
  - BLOOD PRESSURE DECREASED [None]
  - ASTHMA [None]
